FAERS Safety Report 11457498 (Version 1)
Quarter: 2015Q3

REPORT INFORMATION
  Report Type: Spontaneous
  Country: US (occurrence: US)
  Receive Date: 20150904
  Receipt Date: 20150904
  Transmission Date: 20151125
  Serious: No
  Sender: FDA-Public Use
  Company Number: US-BAYER-2015-414610

PATIENT
  Sex: Female

DRUGS (1)
  1. CLARITIN [Suspect]
     Active Substance: LORATADINE
     Dosage: 10 MG, UNK
     Route: 048

REACTIONS (2)
  - Drug ineffective [None]
  - Nasal congestion [None]

NARRATIVE: CASE EVENT DATE: 201508
